FAERS Safety Report 7555758-X (Version None)
Quarter: 2011Q2

REPORT INFORMATION
  Report Type: 
  Country: None (occurrence: None)
  Receive Date: 20110617
  Receipt Date: 20110610
  Transmission Date: 20111010
  Serious: Yes (Other)
  Sender: FDA-Public Use
  Company Number: US-AMGEN-USASP2010006751

PATIENT
  Age: 59 Year
  Sex: Female
  Weight: 83 kg

DRUGS (9)
  1. NPLATE [Suspect]
     Indication: IDIOPATHIC THROMBOCYTOPENIC PURPURA
     Dosage: 4 A?G/KG, QWK
  2. NPLATE [Suspect]
     Dosage: 2 A?G/KG, QWK
     Dates: start: 20100916, end: 20100923
  3. NPLATE [Suspect]
     Dosage: 3 A?G/KG, QWK
     Dates: start: 20101129, end: 20101206
  4. PREDNISONE [Suspect]
     Dosage: 1 MG, UNK
  5. NPLATE [Suspect]
     Dosage: 4 A?G/KG, QWK
     Dates: start: 20100928, end: 20110314
  6. NPLATE [Suspect]
     Dosage: 3.5 A?G/KG, QWK
     Dates: start: 20110214
  7. NPLATE [Suspect]
     Dosage: 1 A?G/KG, QWK
     Route: 058
     Dates: start: 20100902, end: 20100909
  8. PREDNISONE [Suspect]
     Dosage: 80 MG, QD
  9. PREDNISONE [Suspect]
     Dosage: 5 MG, UNK

REACTIONS (3)
  - PLATELET COUNT INCREASED [None]
  - PLATELET COUNT DECREASED [None]
  - ADVERSE DRUG REACTION [None]
